FAERS Safety Report 9628316 (Version 2)
Quarter: 2013Q4

REPORT INFORMATION
  Report Type: Report from Study
  Country: US (occurrence: US)
  Receive Date: 20131017
  Receipt Date: 20131024
  Transmission Date: 20140711
  Serious: Yes (Death, Hospitalization, Disabling, Other)
  Sender: FDA-Public Use
  Company Number: PHEH2013US021546

PATIENT
  Age: 83 Year
  Sex: Male

DRUGS (6)
  1. EXELON PATCH [Suspect]
     Indication: DEMENTIA
     Dosage: 4.6 MG, / 24 HOURS
     Route: 062
     Dates: start: 20130304, end: 20130403
  2. NAMENDA [Concomitant]
     Dosage: 10 MG, BID
  3. SINEMET [Concomitant]
     Dosage: 2.74 UKN, BID
  4. SEROQUEL [Concomitant]
     Dosage: 25 G, BID
  5. SYNTHROID [Concomitant]
     Dosage: UNK UKN, UNK
  6. LISINOPRIL [Concomitant]
     Dosage: UNK UKN, UNK

REACTIONS (7)
  - Death [Fatal]
  - Mental status changes [Unknown]
  - Dementia with Lewy bodies [Recovering/Resolving]
  - Concomitant disease aggravated [Recovering/Resolving]
  - Confusional state [Unknown]
  - Hallucination [Unknown]
  - Drug ineffective [Unknown]
